FAERS Safety Report 5823827-8 (Version None)
Quarter: 2008Q3

REPORT INFORMATION
  Report Type: 
  Country: None (occurrence: None)
  Receive Date: 20080725
  Receipt Date: 20080717
  Transmission Date: 20090109
  Serious: Yes (Other)
  Sender: FDA-Public Use
  Company Number: IT-PFIZER INC-2008060414

PATIENT
  Age: 64 Year
  Sex: Male

DRUGS (5)
  1. IRINOTECAN HCL [Suspect]
     Indication: COLON CANCER METASTATIC
     Route: 042
  2. ONDANSETRON [Concomitant]
     Indication: PREMEDICATION
  3. DEXAMETHASONE [Concomitant]
     Indication: PREMEDICATION
  4. ATROPINE [Concomitant]
     Indication: PREMEDICATION
  5. TRAMADOL HCL [Concomitant]
     Indication: PAIN

REACTIONS (2)
  - APHASIA [None]
  - DYSARTHRIA [None]
